FAERS Safety Report 14091915 (Version 4)
Quarter: 2018Q4

REPORT INFORMATION
  Report Type: Spontaneous
  Country: JP (occurrence: JP)
  Receive Date: 20171016
  Receipt Date: 20181210
  Transmission Date: 20190204
  Serious: Yes (Hospitalization)
  Sender: FDA-Public Use
  Company Number: PHJP2017JP030780

PATIENT
  Age: 7 Year
  Sex: Male
  Weight: 41.5 kg

DRUGS (1)
  1. TEGRETOL [Suspect]
     Active Substance: CARBAMAZEPINE
     Indication: EPILEPSY
     Dosage: 70 MG, BID
     Route: 048
     Dates: end: 20171011

REACTIONS (1)
  - Langerhans^ cell histiocytosis [Recovering/Resolving]

NARRATIVE: CASE EVENT DATE: 201610
